FAERS Safety Report 21052293 (Version 1)
Quarter: 2022Q3

REPORT INFORMATION
  Report Type: Spontaneous
  Country: US (occurrence: None)
  Receive Date: 20220706
  Receipt Date: 20220706
  Transmission Date: 20221026
  Serious: Yes (Hospitalization)
  Sender: FDA-Public Use
  Company Number: None

PATIENT
  Age: 54 Year
  Sex: Female
  Weight: 69.75 kg

DRUGS (4)
  1. ELIQUIS [Suspect]
     Active Substance: APIXABAN
     Indication: Anticoagulant therapy
     Dosage: FREQUENCY : TWICE A DAY;?
     Route: 048
     Dates: start: 20220318, end: 20220525
  2. HYDROCODONE [Concomitant]
     Active Substance: HYDROCODONE
  3. IRON [Concomitant]
     Active Substance: IRON
  4. VITAMIN C [Concomitant]
     Active Substance: ASCORBIC ACID

REACTIONS (7)
  - Anaemia [None]
  - Dizziness postural [None]
  - Tachycardia [None]
  - Dyspnoea [None]
  - Syncope [None]
  - Heavy menstrual bleeding [None]
  - Malaise [None]

NARRATIVE: CASE EVENT DATE: 20220525
